FAERS Safety Report 9263500 (Version 2)
Quarter: 2013Q2

REPORT INFORMATION
  Report Type: Spontaneous
  Country: IT (occurrence: IT)
  Receive Date: 20130430
  Receipt Date: 20130513
  Transmission Date: 20140414
  Serious: Yes (Hospitalization)
  Sender: FDA-Public Use
  Company Number: IT-PFIZER INC-2013126417

PATIENT
  Age: 72 Year
  Sex: Female

DRUGS (10)
  1. CISPLATINO [Suspect]
     Indication: LUNG ADENOCARCINOMA
     Dosage: 30 MG, CYCLIC
     Route: 041
     Dates: start: 20121204, end: 20130417
  2. CISPLATINO [Suspect]
     Dosage: 20 MG, CYCLIC
     Route: 041
     Dates: start: 20121204, end: 20130417
  3. ZOFRAN [Suspect]
     Dosage: 1 DF, CYCLIC
     Route: 041
     Dates: start: 20121204, end: 20130417
  4. ALIMTA [Concomitant]
     Dosage: 700 MG, UNK
     Route: 041
     Dates: start: 20121204, end: 20130417
  5. SOLDESAM [Concomitant]
     Dosage: UNK
  6. RANIDIL [Concomitant]
     Dosage: UNK
  7. FOLINA [Concomitant]
     Dosage: UNK
  8. DELTACORTENE [Concomitant]
     Dosage: UNK
  9. PARACODINA [Concomitant]
     Dosage: UNK
     Route: 048
  10. TRIMETON [Concomitant]
     Dosage: UNK

REACTIONS (4)
  - Bronchospasm [Recovered/Resolved]
  - Dyspnoea [Recovered/Resolved]
  - Erythema [Recovered/Resolved]
  - Tachycardia [Recovered/Resolved]
